FAERS Safety Report 8629052 (Version 2)
Quarter: 2012Q4

REPORT INFORMATION
  Report Type: 
  Country: US (occurrence: US)
  Receive Date: 20120621
  Receipt Date: 20121207
  Transmission Date: 20130627
  Serious: No
  Sender: FDA-Public Use
  Company Number: US-B.I. PHARMACEUTICALS,INC./RIDGEFIELD-2012-BP-13874BP

PATIENT
  Age: 83 None
  Sex: Female

DRUGS (14)
  1. TRADJENTA [Suspect]
     Indication: TYPE 2 DIABETES MELLITUS
     Dosage: 5 mg
     Route: 048
     Dates: start: 201206, end: 201206
  2. ASPIRIN [Concomitant]
     Indication: ISCHAEMIC HEART DISEASE PROPHYLAXIS
     Dosage: 81 mg
     Route: 048
     Dates: start: 2010
  3. CALCITROL [Concomitant]
     Indication: MINERAL SUPPLEMENTATION
     Dosage: 0.25 mg
     Route: 048
     Dates: start: 2011
  4. DIAZEPAM [Concomitant]
     Indication: HYPERTENSION
     Route: 048
     Dates: start: 2000
  5. PROCRIT [Concomitant]
     Indication: RENAL DISORDER
     Dates: start: 2010
  6. GABAPENTIN [Concomitant]
     Indication: PAIN
     Route: 048
     Dates: start: 2010
  7. GABAPENTIN [Concomitant]
     Indication: NEUROPATHY PERIPHERAL
  8. HYDROCHLOROTHIAZIDE [Concomitant]
     Indication: HYPERTENSION
     Dosage: 12.5 mg
     Route: 048
     Dates: start: 201205
  9. IRON SUPPLEMENT [Concomitant]
     Indication: ANAEMIA
     Route: 048
     Dates: start: 2010
  10. NEPHROTATS [Concomitant]
     Indication: RENAL DISORDER
     Route: 048
     Dates: start: 2010
  11. PRAVASTATIN [Concomitant]
     Indication: BLOOD CHOLESTEROL
     Dosage: 40 mg
     Route: 048
     Dates: start: 2007
  12. RANITIDINE [Concomitant]
     Indication: GASTROOESOPHAGEAL REFLUX PROPHYLAXIS
     Dosage: 150 mg
     Route: 048
     Dates: start: 2005
  13. PATANASE NASAL [Concomitant]
     Indication: HYPERSENSITIVITY
     Route: 045
     Dates: start: 201103
  14. VAVA MYST [Concomitant]
     Indication: HYPERSENSITIVITY
     Route: 045
     Dates: start: 201205

REACTIONS (5)
  - Pancreatitis [Unknown]
  - Abdominal pain upper [Recovered/Resolved]
  - Arthralgia [Not Recovered/Not Resolved]
  - Nausea [Recovered/Resolved]
  - Myalgia [Recovered/Resolved]
